FAERS Safety Report 9419457 (Version 1)
Quarter: 2013Q3

REPORT INFORMATION
  Report Type: Spontaneous
  Country: JP (occurrence: JP)
  Receive Date: 20130725
  Receipt Date: 20130725
  Transmission Date: 20140515
  Serious: Yes (Death, Hospitalization, Disabling, Other)
  Sender: FDA-Public Use
  Company Number: JP-PFIZER INC-JP-WYE-H12205709

PATIENT
  Age: 78 Year
  Sex: Female

DRUGS (22)
  1. ANCARON [Suspect]
     Indication: VENTRICULAR FIBRILLATION
     Dosage: 200 MG, UNK
     Route: 048
     Dates: start: 20090907, end: 20090914
  2. ANCARON [Suspect]
     Indication: VENTRICULAR TACHYARRHYTHMIA
  3. ANCARON [Suspect]
     Indication: VENTRICULAR TACHYCARDIA
  4. LIPITOR [Suspect]
     Indication: HYPERLIPIDAEMIA
     Dosage: 10 MG, 1X/DAY
     Route: 048
     Dates: start: 20090905, end: 20090914
  5. AMIODARONE HYDROCHLORIDE [Suspect]
     Indication: VENTRICULAR FIBRILLATION
     Dosage: 1.25 MG/DL ONCE OVER A FEW HOURS
     Route: 042
     Dates: start: 20090905, end: 20090905
  6. AMIODARONE HYDROCHLORIDE [Suspect]
     Indication: VENTRICULAR TACHYARRHYTHMIA
     Dosage: 1.5 MG/DL ONCE OVER A FEW HOURS
     Route: 042
     Dates: start: 20090905, end: 20090906
  7. AMIODARONE HYDROCHLORIDE [Suspect]
     Dosage: 1.5 MG/DL ONCE OVER A FEW HOURS
     Route: 042
     Dates: start: 20090906, end: 20090907
  8. PLAVIX [Suspect]
     Indication: ACUTE MYOCARDIAL INFARCTION
     Dosage: 300 MG DAILY
     Route: 050
     Dates: start: 20090905, end: 20090905
  9. PLAVIX [Suspect]
     Indication: STENT PLACEMENT
     Dosage: 75 MG DAILY
     Route: 050
     Dates: start: 20090906, end: 20090914
  10. TAKEPRON [Suspect]
     Dosage: 30 MG, UNK
     Route: 065
     Dates: start: 20090905, end: 20090914
  11. BAYASPIRINA [Suspect]
     Dosage: 100 MG, UNK
     Route: 065
     Dates: start: 20090905, end: 20090914
  12. MAGNESIUM OXIDE [Suspect]
     Dosage: 990 MG, UNK
     Route: 065
     Dates: start: 20090906, end: 20090914
  13. HANP [Concomitant]
     Dosage: UNK
     Route: 065
     Dates: start: 20090911, end: 20090922
  14. PRECEDEX [Concomitant]
     Dosage: UNK
     Route: 065
     Dates: start: 20090905, end: 20090915
  15. DOBUTAMINE HYDROCHLORIDE [Concomitant]
     Dosage: 8 GAMMA
     Route: 065
     Dates: start: 20090905, end: 20090913
  16. INOVAN [Concomitant]
     Dosage: 10 GAMMA
     Route: 065
     Dates: start: 20090905, end: 20090923
  17. NITROGLYCERIN ^A.L.^ [Concomitant]
     Dosage: UNK
     Route: 065
     Dates: start: 20090914, end: 20090922
  18. HEPARIN [Concomitant]
     Dosage: UNK
     Route: 065
     Dates: start: 20090905, end: 20090920
  19. NORADRENALINE [Concomitant]
     Dosage: 0.6 GAMMA
     Route: 065
     Dates: start: 20090905, end: 20090916
  20. DIPRIVAN [Concomitant]
     Dosage: UNK
     Route: 065
     Dates: start: 20090907, end: 20090913
  21. ELASPOL [Concomitant]
     Dosage: UNK
     Route: 065
     Dates: start: 20090905, end: 20090918
  22. LANDIOLOL HYDROCHLORIDE [Concomitant]
     Dosage: UNK
     Dates: start: 20090905, end: 20090918

REACTIONS (10)
  - Hepatic failure [Fatal]
  - Multi-organ failure [Fatal]
  - Acute myocardial infarction [Fatal]
  - Cardiac failure acute [Fatal]
  - Ventricular fibrillation [Unknown]
  - Ventricular tachycardia [Unknown]
  - Jaundice [Unknown]
  - Haemorrhage [Unknown]
  - Haemoglobin decreased [Unknown]
  - Platelet count decreased [Unknown]
